FAERS Safety Report 11197964 (Version 1)
Quarter: 2015Q2

REPORT INFORMATION
  Report Type: Report from Study
  Country: US (occurrence: US)
  Receive Date: 20150617
  Receipt Date: 20150617
  Transmission Date: 20150821
  Serious: Yes (Hospitalization)
  Sender: FDA-Public Use
  Company Number: PHEH2015US006977

PATIENT
  Sex: Female
  Weight: 77.98 kg

DRUGS (1)
  1. GILENYA [Suspect]
     Active Substance: FINGOLIMOD HYDROCHLORIDE
     Indication: MULTIPLE SCLEROSIS RELAPSE
     Dosage: 0.5 MG, QD
     Route: 048
     Dates: start: 20150402

REACTIONS (7)
  - Hypersensitivity [Unknown]
  - Cough [Not Recovered/Not Resolved]
  - Back pain [Unknown]
  - Rash [Unknown]
  - White blood cell count decreased [Unknown]
  - Diarrhoea [Unknown]
  - Sinusitis [Unknown]
